FAERS Safety Report 8229940-2 (Version None)
Quarter: 2012Q1

REPORT INFORMATION
  Report Type: 
  Country: None (occurrence: None)
  Receive Date: 20120323
  Receipt Date: 20120313
  Transmission Date: 20120608
  Serious: No
  Sender: FDA-Public Use
  Company Number: US-BIOGENIDEC-2012BI009088

PATIENT
  Sex: Female

DRUGS (3)
  1. TYSABRI [Suspect]
     Route: 042
     Dates: start: 20101108, end: 20111118
  2. TYSABRI [Suspect]
     Route: 042
     Dates: start: 20120310
  3. TYSABRI [Suspect]
     Indication: MULTIPLE SCLEROSIS
     Route: 042
     Dates: start: 20091105, end: 20100701

REACTIONS (5)
  - GAIT DISTURBANCE [None]
  - NECK PAIN [None]
  - FATIGUE [None]
  - HEADACHE [None]
  - MENOPAUSE [None]
